FAERS Safety Report 9061406 (Version 1)
Quarter: 2013Q1

REPORT INFORMATION
  Report Type: Spontaneous
  Country: US (occurrence: None)
  Receive Date: 20130208
  Receipt Date: 20130208
  Transmission Date: 20140127
  Serious: No
  Sender: FDA-Public Use
  Company Number: None

PATIENT
  Age: 45 Year
  Sex: Female
  Weight: 73.03 kg

DRUGS (2)
  1. MIRENA IUD BAYER [Suspect]
     Indication: CONTRACEPTION
     Dates: start: 20130131, end: 20130206
  2. MIRENA IUD BAYER [Suspect]
     Indication: MENSTRUAL CYCLE MANAGEMENT
     Dates: start: 20130131, end: 20130206

REACTIONS (8)
  - Depression [None]
  - Muscle spasms [None]
  - Genital tract inflammation [None]
  - Photophobia [None]
  - Paraesthesia [None]
  - Abdominal distension [None]
  - Nausea [None]
  - Vaginal infection [None]
